FAERS Safety Report 8940421 (Version 2)
Quarter: 2012Q4

REPORT INFORMATION
  Report Type: 
  Country: US (occurrence: US)
  Receive Date: 20121203
  Receipt Date: 20121217
  Transmission Date: 20130627
  Serious: No
  Sender: FDA-Public Use
  Company Number: US-TEVA-373396USA

PATIENT
  Age: 36 None
  Sex: Female
  Weight: 51.3 kg

DRUGS (1)
  1. PLAN B ONE-STEP [Suspect]
     Indication: POST COITAL CONTRACEPTION
     Dosage: 1.5 Milligram Daily;
     Route: 048
     Dates: start: 20121123, end: 20121123

REACTIONS (8)
  - Vulvovaginal burning sensation [Recovered/Resolved]
  - Pain [Recovered/Resolved]
  - Micturition urgency [Recovered/Resolved]
  - Haemorrhage [Unknown]
  - Blood urine present [Recovered/Resolved]
  - Vaginal odour [Recovered/Resolved]
  - Menstruation irregular [Recovered/Resolved]
  - Breast tenderness [Not Recovered/Not Resolved]
